FAERS Safety Report 9704703 (Version 1)
Quarter: 2013Q4

REPORT INFORMATION
  Report Type: Spontaneous
  Country: US (occurrence: US)
  Receive Date: 20131122
  Receipt Date: 20131122
  Transmission Date: 20140711
  Serious: No
  Sender: FDA-Public Use
  Company Number: US-JNJFOC-20131105940

PATIENT
  Age: 54 Year
  Sex: Female
  Weight: 58.06 kg

DRUGS (7)
  1. DURAGESIC [Suspect]
     Indication: PAIN
     Route: 062
     Dates: start: 2003
  2. PLAQUENIL [Concomitant]
     Indication: SYSTEMIC LUPUS ERYTHEMATOSUS
     Route: 065
     Dates: start: 1998
  3. HUMALOG [Concomitant]
     Indication: DIABETES MELLITUS
     Route: 065
     Dates: start: 2003
  4. HUMALIN [Concomitant]
     Indication: DIABETES MELLITUS
     Route: 065
     Dates: start: 2003
  5. SYNTHROID [Concomitant]
     Indication: THYROID DISORDER
     Route: 065
     Dates: start: 1993
  6. LEXAPRO [Concomitant]
     Indication: ANTIDEPRESSANT THERAPY
     Route: 065
     Dates: start: 1993
  7. METOPROLOL [Concomitant]
     Indication: BLOOD PRESSURE
     Route: 065
     Dates: start: 2000

REACTIONS (7)
  - Depression [Unknown]
  - Menopause [Unknown]
  - Feeling cold [Not Recovered/Not Resolved]
  - Drug dose omission [Not Recovered/Not Resolved]
  - Blood glucose decreased [Unknown]
  - Hyperhidrosis [Unknown]
  - Chills [Unknown]
